FAERS Safety Report 9833751 (Version 2)
Quarter: 2014Q1

REPORT INFORMATION
  Report Type: Spontaneous
  Country: US (occurrence: US)
  Receive Date: 20140122
  Receipt Date: 20140324
  Transmission Date: 20141002
  Serious: Yes (Hospitalization)
  Sender: FDA-Public Use
  Company Number: US-BIOGENIDEC-2014BI002171

PATIENT
  Age: 65 Year
  Sex: Male

DRUGS (1)
  1. TECFIDERA [Suspect]
     Indication: MULTIPLE SCLEROSIS
     Dates: start: 20130513, end: 20131223

REACTIONS (2)
  - Toxic encephalopathy [Recovered/Resolved]
  - Metabolic encephalopathy [Recovered/Resolved]
